FAERS Safety Report 24926537 (Version 2)
Quarter: 2025Q2

REPORT INFORMATION
  Report Type: Report from Study
  Country: CA (occurrence: CA)
  Receive Date: 20250205
  Receipt Date: 20250513
  Transmission Date: 20250716
  Serious: Yes (Hospitalization)
  Sender: AMGEN
  Company Number: CA-Vifor (International) Inc.-VIT-2024-05906

PATIENT
  Sex: Female

DRUGS (3)
  1. AVACOPAN [Suspect]
     Active Substance: AVACOPAN
     Indication: Hypersensitivity vasculitis
     Dosage: 30 MG, BID
     Route: 048
     Dates: end: 2024
  2. AVACOPAN [Suspect]
     Active Substance: AVACOPAN
     Dosage: 30 MG, BID
     Route: 048
  3. AVACOPAN [Suspect]
     Active Substance: AVACOPAN
     Route: 048

REACTIONS (5)
  - Hospitalisation [Unknown]
  - Diarrhoea [Recovering/Resolving]
  - Off label use [Unknown]
  - Product dose omission issue [Unknown]
  - Intentional product use issue [Unknown]

NARRATIVE: CASE EVENT DATE: 20240301
